FAERS Safety Report 5603117-9 (Version None)
Quarter: 2008Q1

REPORT INFORMATION
  Report Type: 
  Country: None (occurrence: None)
  Receive Date: 20080125
  Receipt Date: 20080114
  Transmission Date: 20080703
  Serious: Yes (Hospitalization, Other)
  Sender: FDA-Public Use
  Company Number: AT-PFIZER INC-2008001894

PATIENT
  Age: 75 Year
  Sex: Male

DRUGS (4)
  1. DALACIN [Suspect]
     Indication: TOOTH EXTRACTION
     Route: 048
     Dates: start: 20060101, end: 20060101
  2. PANTOPRAZOLE SODIUM [Concomitant]
  3. BETA BLOCKING AGENTS [Concomitant]
  4. CORTISONE [Concomitant]

REACTIONS (1)
  - GASTROINTESTINAL HAEMORRHAGE [None]
